FAERS Safety Report 8393839-1 (Version None)
Quarter: 2012Q2

REPORT INFORMATION
  Report Type: 
  Country: None (occurrence: None)
  Receive Date: 20120530
  Receipt Date: 20120525
  Transmission Date: 20120825
  Serious: No
  Sender: FDA-Public Use
  Company Number: US-PFIZER INC-2012127277

PATIENT
  Sex: Male
  Weight: 102 kg

DRUGS (4)
  1. ASPIRIN [Concomitant]
     Indication: CARDIAC DISORDER
     Dosage: 325 MG, 2X/DAY
  2. METOPROLOL [Concomitant]
     Indication: CARDIAC DISORDER
     Dosage: 50 MG, 2X/DAY
  3. LISINOPRIL [Concomitant]
     Indication: CARDIAC DISORDER
     Dosage: 40 MG, DAILY
  4. NITROGLYCERIN [Suspect]
     Indication: CHEST PAIN
     Dosage: 0.4 MG, AS NEEDED
     Dates: end: 20120201

REACTIONS (2)
  - CLUSTER HEADACHE [None]
  - FEELING ABNORMAL [None]
